FAERS Safety Report 5524802-3 (Version None)
Quarter: 2007Q4

REPORT INFORMATION
  Report Type: 
  Country: None (occurrence: None)
  Receive Date: 20071116
  Receipt Date: 20071105
  Transmission Date: 20080405
  Serious: Yes (Death)
  Sender: FDA-Public Use
  Company Number: B0494910A

PATIENT

DRUGS (3)
  1. ACETAMINOPHEN [Suspect]
  2. NITRENDIPINE (FORMULATION UNKNOWN) (NITRENDIPINE) [Suspect]
  3. TRIAZOLAM [Suspect]

REACTIONS (2)
  - DRUG LEVEL ABOVE THERAPEUTIC [None]
  - DRUG TOXICITY [None]
